FAERS Safety Report 8403136-3 (Version None)
Quarter: 2012Q2

REPORT INFORMATION
  Report Type: 
  Country: None (occurrence: None)
  Receive Date: 20120601
  Receipt Date: 20120521
  Transmission Date: 20120825
  Serious: Yes (Death)
  Sender: FDA-Public Use
  Company Number: US-JNJFOC-20120519366

PATIENT
  Sex: Female
  Weight: 67.59 kg

DRUGS (30)
  1. XANAX [Concomitant]
     Indication: ANXIETY
     Route: 048
     Dates: start: 20090507
  2. ADDERALL 5 [Concomitant]
     Route: 048
     Dates: start: 20090507
  3. FENTANYL-100 [Suspect]
     Indication: PAIN
     Route: 062
  4. EPHEDRINE [Concomitant]
     Route: 065
  5. PREVACID [Concomitant]
     Route: 048
     Dates: start: 20080114
  6. DURAGESIC-100 [Suspect]
     Route: 062
  7. XANAX [Concomitant]
     Route: 048
     Dates: start: 20080114
  8. FENTANYL-100 [Suspect]
     Route: 062
     Dates: start: 20080101
  9. FENTANYL-100 [Suspect]
     Route: 062
     Dates: start: 20080101
  10. AMPHETAMINE SULFATE [Concomitant]
     Route: 065
  11. DURAGESIC-100 [Suspect]
     Indication: PAIN
     Route: 062
     Dates: start: 20090101
  12. SILVADENE [Concomitant]
     Route: 061
     Dates: start: 20090507
  13. ZYRTEC [Concomitant]
     Route: 048
     Dates: start: 20090507
  14. LYRICA [Concomitant]
     Route: 048
  15. ENABLEX [Concomitant]
     Route: 048
     Dates: start: 20080114
  16. ALLEGRA [Concomitant]
     Route: 048
     Dates: start: 20080114
  17. ALPRAZOLAM [Concomitant]
     Dosage: AS NEEDED
     Route: 065
  18. CYMBALTA [Concomitant]
     Route: 048
     Dates: start: 20080101
  19. MIACALCIN [Concomitant]
     Dosage: 1 SPRAY (200 UNITS) ALTERNATE NOSTRILS DAILY
     Route: 045
     Dates: start: 20080114
  20. IMITREX [Concomitant]
     Indication: HEADACHE
     Route: 045
     Dates: start: 20090507
  21. ADDERALL 5 [Concomitant]
     Indication: HEADACHE
     Route: 048
     Dates: start: 20080101
  22. NEURONTIN [Concomitant]
     Route: 048
     Dates: start: 20080114
  23. FENTANYL-100 [Suspect]
     Route: 062
  24. MIACALCIN [Concomitant]
     Dosage: 200 UNITS ALTERNATE NOSTRILS DAILY
     Route: 045
     Dates: start: 20090507
  25. PREVACID [Concomitant]
     Route: 048
     Dates: start: 20090507
  26. SILVADENE [Concomitant]
     Route: 061
     Dates: start: 20080114
  27. VESICARE [Concomitant]
     Route: 048
     Dates: start: 20090507
  28. DURAGESIC-100 [Suspect]
     Route: 062
     Dates: start: 20090507
  29. GABAPENTIN [Concomitant]
     Route: 065
  30. CYMBALTA [Concomitant]
     Route: 048
     Dates: start: 20090507

REACTIONS (2)
  - DRUG EFFECT DECREASED [None]
  - ACCIDENTAL OVERDOSE [None]
